FAERS Safety Report 16148356 (Version 2)
Quarter: 2019Q2

REPORT INFORMATION
  Report Type: Report from Study
  Country: ZA (occurrence: ZA)
  Receive Date: 20190402
  Receipt Date: 20190502
  Transmission Date: 20190711
  Serious: Yes (Hospitalization)
  Sender: FDA-Public Use
  Company Number: ZA-SA-2019SA028876

PATIENT
  Age: 39 Year
  Sex: Female

DRUGS (4)
  1. GLUCOPHAGE [Concomitant]
     Active Substance: METFORMIN HYDROCHLORIDE
     Dosage: 1000 MG, BID
     Dates: start: 20151031
  2. ONGLYZA [Concomitant]
     Active Substance: SAXAGLIPTIN HYDROCHLORIDE
     Dosage: 5 MG, QD
     Dates: start: 20161031
  3. GITSALAT [Concomitant]
     Dosage: 60 MG, QD
     Dates: start: 20150101
  4. OPTISULIN (INSULIN GLARGINE) [Suspect]
     Active Substance: INSULIN GLARGINE
     Dosage: 14 U, HS
     Dates: start: 20181025

REACTIONS (8)
  - Diarrhoea [Recovered/Resolved]
  - Hospitalisation [Unknown]
  - Vulvovaginal candidiasis [Not Recovered/Not Resolved]
  - Glycosylated haemoglobin increased [Unknown]
  - Asthenia [Recovered/Resolved]
  - Menstrual disorder [Not Recovered/Not Resolved]
  - Metrorrhagia [Not Recovered/Not Resolved]
  - Headache [Recovered/Resolved]

NARRATIVE: CASE EVENT DATE: 20190102
